FAERS Safety Report 9290091 (Version 1)
Quarter: 2013Q2

REPORT INFORMATION
  Report Type: Spontaneous
  Country: US (occurrence: US)
  Receive Date: 20130515
  Receipt Date: 20130515
  Transmission Date: 20140414
  Serious: No
  Sender: FDA-Public Use
  Company Number: US-OPTIMER PHARMACEUTICALS, INC.-20120052

PATIENT
  Age: 81 Year
  Sex: Female
  Weight: 70.3 kg

DRUGS (10)
  1. DIFICID [Suspect]
     Indication: CLOSTRIDIAL INFECTION
     Dosage: 200 MG, BID
     Route: 048
     Dates: start: 20120220, end: 20120309
  2. ARICEPT [Concomitant]
     Dosage: UNK
  3. CARDIZEM [Concomitant]
     Dosage: UNK
  4. LASIX [Concomitant]
     Dosage: UNK
  5. METOPROLOL [Concomitant]
     Dosage: UNK
  6. LACTOBACILLUS [Concomitant]
     Dosage: UNK
  7. OXYBUTYNIN [Concomitant]
     Dosage: UNK
  8. POTASSIUM [Concomitant]
     Dosage: UNK
  9. PREDNISONE [Concomitant]
     Dosage: UNK
  10. COUMADIN [Concomitant]
     Dosage: UNK

REACTIONS (8)
  - Clostridium difficile infection [Recovering/Resolving]
  - Disease recurrence [Recovering/Resolving]
  - Faeces discoloured [Unknown]
  - Abnormal faeces [Recovering/Resolving]
  - Lethargy [Recovering/Resolving]
  - Diarrhoea [Recovering/Resolving]
  - Faecal incontinence [Recovering/Resolving]
  - Off label use [Unknown]
